FAERS Safety Report 8950966 (Version 1)
Quarter: 2012Q4

REPORT INFORMATION
  Report Type: 
  Country: US (occurrence: None)
  Receive Date: 20121130
  Receipt Date: 20121130
  Transmission Date: 20130627
  Serious: No
  Sender: FDA-Public Use
  Company Number: None

PATIENT

DRUGS (2)
  1. BUPROPION HCL EXTENDED RELEASE 150 MG MYLAN PHARMACEUTICALS, INC. [Suspect]
     Route: 048
  2. BUDEPRION XL BUPROPION HYDROCHLORIDE EXTENDED-RELEASE TABLET 150 MG TEVA [Suspect]

REACTIONS (6)
  - Medication error [None]
  - Drug dispensing error [None]
  - Wrong drug administered [None]
  - Feeling abnormal [None]
  - Fibromyalgia [None]
  - Depression [None]
